FAERS Safety Report 4301555-8 (Version None)
Quarter: 2004Q1

REPORT INFORMATION
  Report Type: 
  Country: None (occurrence: None)
  Receive Date: 20040219
  Receipt Date: 20030605
  Transmission Date: 20041129
  Serious: No
  Sender: FDA-Public Use
  Company Number: 03061085

PATIENT
  Age: 74 Year
  Sex: Female
  Weight: 65.7716 kg

DRUGS (3)
  1. CLOTRIMAZOLE             7-DAY VAGINAL CREAM [Suspect]
     Indication: VAGINAL CANDIDIASIS
     Route: 067
     Dates: start: 20030320, end: 20030326
  2. VAGIFEM [Concomitant]
  3. ESTRACE [Concomitant]

REACTIONS (2)
  - FUNGAL INFECTION [None]
  - VAGINITIS [None]
